FAERS Safety Report 21602814 (Version 1)
Quarter: 2022Q4

REPORT INFORMATION
  Report Type: Spontaneous
  Country: US (occurrence: None)
  Receive Date: 20221115
  Receipt Date: 20221115
  Transmission Date: 20230113
  Serious: No
  Sender: FDA-Public Use
  Company Number: None

PATIENT
  Sex: Female
  Weight: 76.5 kg

DRUGS (6)
  1. UBRELVY [Suspect]
     Active Substance: UBROGEPANT
     Dosage: OTHER FREQUENCY : UP 2 TWO PER DAY;?
     Dates: start: 20221115, end: 20221115
  2. XANAX [Concomitant]
     Active Substance: ALPRAZOLAM
  3. METOPROLOL [Concomitant]
     Active Substance: METOPROLOL
  4. ZOFRAN [Concomitant]
     Active Substance: ONDANSETRON HYDROCHLORIDE
  5. ATORVASTATIN [Concomitant]
     Active Substance: ATORVASTATIN
  6. NEXIUM [Concomitant]
     Active Substance: ESOMEPRAZOLE MAGNESIUM

REACTIONS (2)
  - Dizziness [None]
  - Somnolence [None]
